FAERS Safety Report 4953836-2 (Version None)
Quarter: 2006Q1

REPORT INFORMATION
  Report Type: 
  Country: None (occurrence: None)
  Receive Date: 20060321
  Receipt Date: 20060313
  Transmission Date: 20060701
  Serious: Yes (Other)
  Sender: FDA-Public Use
  Company Number: S06-USA-00290-01

PATIENT
  Age: 82 Year
  Sex: Female

DRUGS (7)
  1. LEXAPRO [Suspect]
     Indication: DEPRESSION
     Dosage: 22.5 MG QD PO
     Route: 048
     Dates: start: 20051101, end: 20060118
  2. LEXAPRO [Suspect]
     Indication: DEPRESSION
     Dosage: 20 MG QD PO
     Route: 048
     Dates: start: 20030301, end: 20051101
  3. LEXAPRO [Suspect]
     Indication: DEPRESSION
     Dosage: 15 MG QD PO
     Route: 048
     Dates: start: 20060119
  4. ACIPHEX [Suspect]
     Indication: GASTROOESOPHAGEAL REFLUX DISEASE
     Dates: end: 20051201
  5. ACIPHEX [Suspect]
     Indication: GASTROOESOPHAGEAL REFLUX DISEASE
     Dates: end: 20060117
  6. LOTREL [Suspect]
     Indication: HYPERTENSION
     Dates: end: 20051201
  7. TRIAMTERENE AND HYDROCHLOROTHIAZIDE [Concomitant]

REACTIONS (8)
  - ANOREXIA [None]
  - APATHY [None]
  - ASTHENIA [None]
  - HYPERSOMNIA [None]
  - MALAISE [None]
  - NEPHRITIS INTERSTITIAL [None]
  - RENAL ARTERY STENOSIS [None]
  - RENAL IMPAIRMENT [None]
